FAERS Safety Report 10347502 (Version 1)
Quarter: 2014Q3

REPORT INFORMATION
  Report Type: Spontaneous
  Country: US (occurrence: None)
  Receive Date: 20140728
  Receipt Date: 20140728
  Transmission Date: 20150326
  Serious: Yes (Life-Threatening, Hospitalization)
  Sender: FDA-Public Use
  Company Number: None

PATIENT
  Age: 86 Year
  Sex: Female

DRUGS (1)
  1. LABETALOL [Suspect]
     Active Substance: LABETALOL\LABETALOL HYDROCHLORIDE
     Dosage: INTRAVENOUS
     Route: 042

REACTIONS (4)
  - Hypotension [None]
  - Ventricular tachycardia [None]
  - Cardio-respiratory arrest [None]
  - Pulse abnormal [None]

NARRATIVE: CASE EVENT DATE: 20140611
